FAERS Safety Report 6890409-9 (Version None)
Quarter: 2010Q3

REPORT INFORMATION
  Report Type: 
  Country: None (occurrence: None)
  Receive Date: 20100730
  Receipt Date: 20081022
  Transmission Date: 20110219
  Serious: No
  Sender: FDA-Public Use
  Company Number: US-PFIZER INC-2008089557

PATIENT
  Age: 75 Year
  Sex: Male
  Weight: 102.1 kg

DRUGS (3)
  1. LIPITOR [Suspect]
     Indication: BLOOD CHOLESTEROL INCREASED
     Dates: start: 20080723, end: 20080801
  2. LUNESTA [Suspect]
     Indication: INSOMNIA
     Route: 048
     Dates: start: 20080818
  3. PAXIL [Suspect]
     Indication: DEPRESSION
     Dates: start: 20080801, end: 20080801

REACTIONS (3)
  - ERECTILE DYSFUNCTION [None]
  - FEELING ABNORMAL [None]
  - INSOMNIA [None]
